FAERS Safety Report 9388469 (Version 1)
Quarter: 2013Q3

REPORT INFORMATION
  Report Type: Spontaneous
  Country: US (occurrence: US)
  Receive Date: 20130708
  Receipt Date: 20130708
  Transmission Date: 20140515
  Serious: No
  Sender: FDA-Public Use
  Company Number: US-ASTRAZENECA-2013SE46629

PATIENT
  Age: 66 Year
  Sex: Male
  Weight: 92.5 kg

DRUGS (4)
  1. SYMBICORT [Suspect]
     Indication: DYSPNOEA
     Dosage: 80-4.5, BID
     Route: 055
     Dates: start: 20130506
  2. ALBUTEROL [Suspect]
  3. NIASPAN [Concomitant]
     Indication: CARDIAC FAILURE CONGESTIVE
  4. EYE DROPS [Concomitant]
     Indication: GLAUCOMA

REACTIONS (6)
  - Increased upper airway secretion [Unknown]
  - Rhinorrhoea [Unknown]
  - Nasal congestion [Unknown]
  - Nasopharyngitis [Unknown]
  - Cough [Unknown]
  - Dysphonia [Unknown]
